FAERS Safety Report 9127395 (Version 1)
Quarter: 2013Q1

REPORT INFORMATION
  Report Type: Spontaneous
  Country: US (occurrence: US)
  Receive Date: 20130228
  Receipt Date: 20130228
  Transmission Date: 20140127
  Serious: No
  Sender: FDA-Public Use
  Company Number: US-GLAXOSMITHKLINE-A0973231A

PATIENT
  Age: 49 Year
  Sex: Female

DRUGS (6)
  1. LAMICTAL [Suspect]
     Indication: BIPOLAR I DISORDER
     Dosage: 200MG VARIABLE DOSE
     Route: 048
     Dates: start: 201109
  2. SYNTHROID [Concomitant]
  3. VITAMINS [Concomitant]
  4. FISH OIL [Concomitant]
  5. B-COMPLEX [Concomitant]
  6. PROBIOTICS [Concomitant]

REACTIONS (2)
  - Fat redistribution [Not Recovered/Not Resolved]
  - Weight decreased [Unknown]
